FAERS Safety Report 12425810 (Version 3)
Quarter: 2016Q2

REPORT INFORMATION
  Report Type: Spontaneous
  Country: US (occurrence: US)
  Receive Date: 20160601
  Receipt Date: 20160616
  Transmission Date: 20160815
  Serious: Yes (Other)
  Sender: FDA-Public Use
  Company Number: US-PFIZER INC-2016283013

PATIENT
  Sex: Female

DRUGS (4)
  1. LYRICA [Suspect]
     Active Substance: PREGABALIN
     Indication: FIBROMYALGIA
     Dosage: UNK
  2. MOBIC [Suspect]
     Active Substance: MELOXICAM
     Indication: NEURALGIA
  3. LYRICA [Suspect]
     Active Substance: PREGABALIN
     Indication: NEURALGIA
  4. MOBIC [Suspect]
     Active Substance: MELOXICAM
     Indication: FIBROMYALGIA
     Dosage: UNK

REACTIONS (2)
  - Intestinal perforation [Unknown]
  - Dysgraphia [Unknown]
